FAERS Safety Report 8457340-9 (Version None)
Quarter: 2012Q2

REPORT INFORMATION
  Report Type: 
  Country: None (occurrence: None)
  Receive Date: 20120621
  Receipt Date: 20120618
  Transmission Date: 20120825
  Serious: Yes (Death)
  Sender: FDA-Public Use
  Company Number: TW-BAXTER-2012BAX009123

PATIENT

DRUGS (3)
  1. DIANEAL LOW CALCIUM W/ DEXTROSE 1.5% [Suspect]
     Route: 033
  2. DIANEAL LOW CALCIUM WITH DEXTROSE 1.5% AND CALCIUM 2.5MEQ/L [Suspect]
     Route: 033
  3. EXTRANEAL [Suspect]
     Route: 033

REACTIONS (1)
  - DEATH [None]
